FAERS Safety Report 9032338 (Version 3)
Quarter: 2013Q3

REPORT INFORMATION
  Report Type: Report from Study
  Country: JP (occurrence: JP)
  Receive Date: 20130125
  Receipt Date: 20130821
  Transmission Date: 20140515
  Serious: Yes (Death)
  Sender: FDA-Public Use
  Company Number: JP-UCBSA-076198

PATIENT
  Age: 70 Year
  Sex: Male
  Weight: 51.5 kg

DRUGS (2)
  1. E KEPPRA [Suspect]
     Indication: PARTIAL SEIZURES WITH SECONDARY GENERALISATION
     Route: 048
     Dates: start: 20120709, end: 20121012
  2. ALEVIATIN [Concomitant]
     Indication: PARTIAL SEIZURES WITH SECONDARY GENERALISATION
     Dosage: 300 MG
     Dates: end: 20121012

REACTIONS (1)
  - Death [Fatal]
